FAERS Safety Report 5836434-8 (Version None)
Quarter: 2008Q3

REPORT INFORMATION
  Report Type: 
  Country: None (occurrence: None)
  Receive Date: 20080807
  Receipt Date: 20080724
  Transmission Date: 20090109
  Serious: Yes (Other)
  Sender: FDA-Public Use
  Company Number: PHHY2008AU15722

PATIENT
  Sex: Female

DRUGS (1)
  1. VOLTAREN [Suspect]
     Route: 054

REACTIONS (4)
  - CHROMATURIA [None]
  - DYSURIA [None]
  - INCORRECT ROUTE OF DRUG ADMINISTRATION [None]
  - URINARY RETENTION [None]
